FAERS Safety Report 25553505 (Version 2)
Quarter: 2025Q3

REPORT INFORMATION
  Report Type: Spontaneous
  Country: EU (occurrence: EU)
  Receive Date: 20250715
  Receipt Date: 20250808
  Transmission Date: 20251021
  Serious: Yes (Other)
  Sender: UCB
  Company Number: None

PATIENT
  Age: 14 Year

DRUGS (3)
  1. LACOSAMIDE [Interacting]
     Active Substance: LACOSAMIDE
     Indication: Seizure prophylaxis
  2. VALPROATE [Interacting]
     Active Substance: VALPROIC ACID
     Indication: Seizure prophylaxis
  3. LEVETIRACETAM [Interacting]
     Active Substance: LEVETIRACETAM
     Indication: Seizure prophylaxis

REACTIONS (2)
  - Anticonvulsant drug level decreased [Recovered/Resolved]
  - Drug interaction [Recovered/Resolved]
